FAERS Safety Report 8756208 (Version 2)
Quarter: 2012Q4

REPORT INFORMATION
  Report Type: 
  Country: IT (occurrence: IT)
  Receive Date: 20120828
  Receipt Date: 20120830
  Transmission Date: 20130627
  Serious: Yes (Hospitalization)
  Sender: FDA-Public Use
  Company Number: PHHY2012IT073763

PATIENT
  Age: 91 Year
  Sex: Female

DRUGS (1)
  1. FEMARA [Suspect]
     Indication: BREAST CANCER
     Dosage: 1 DF, daily
     Route: 048
     Dates: start: 20110928, end: 20120518

REACTIONS (4)
  - Nausea [Recovered/Resolved]
  - Hypercoagulation [Recovered/Resolved]
  - Transient ischaemic attack [Recovered/Resolved]
  - Dizziness postural [Recovered/Resolved]
